FAERS Safety Report 6152821-5 (Version None)
Quarter: 2009Q2

REPORT INFORMATION
  Report Type: 
  Country: None (occurrence: None)
  Receive Date: 20090409
  Receipt Date: 20090401
  Transmission Date: 20091009
  Serious: Yes (Death)
  Sender: FDA-Public Use
  Company Number: JPI-P-006849

PATIENT
  Age: 31 Year
  Sex: Female

DRUGS (4)
  1. XYREM [Suspect]
     Indication: CATAPLEXY
     Dosage: 4 GM (2 GM, 2 IN 1 D), ORAL; 6 GM (3 GM, 2 IN 1 D), ORAL
     Route: 048
     Dates: start: 20070518
  2. XYREM [Suspect]
     Indication: NARCOLEPSY
     Dosage: 4 GM (2 GM, 2 IN 1 D), ORAL; 6 GM (3 GM, 2 IN 1 D), ORAL
     Route: 048
     Dates: start: 20070518
  3. XYREM [Suspect]
     Indication: CATAPLEXY
     Dosage: 4 GM (2 GM, 2 IN 1 D), ORAL; 6 GM (3 GM, 2 IN 1 D), ORAL
     Route: 048
     Dates: start: 20090113
  4. XYREM [Suspect]
     Indication: NARCOLEPSY
     Dosage: 4 GM (2 GM, 2 IN 1 D), ORAL; 6 GM (3 GM, 2 IN 1 D), ORAL
     Route: 048
     Dates: start: 20090113

REACTIONS (1)
  - DEATH [None]
